FAERS Safety Report 8802139 (Version 1)
Quarter: 2012Q4

REPORT INFORMATION
  Report Type: 
  Country: ES (occurrence: ES)
  Receive Date: 20120921
  Receipt Date: 20120921
  Transmission Date: 20130627
  Serious: Yes (Other)
  Sender: FDA-Public Use
  Company Number: GB-AMGEN-ESPSP2011006714

PATIENT
  Age: 18 Year
  Sex: Male
  Weight: 66 kg

DRUGS (2)
  1. NPLATE [Suspect]
     Indication: IDIOPATHIC THROMBOCYTOPENIC PURPURA
     Dosage: 4 mug/kg, UNK
     Dates: start: 20100301
  2. NPLATE [Suspect]
     Dosage: 10 mug/kg, UNK
     Dates: end: 20100330

REACTIONS (2)
  - Drug ineffective [Unknown]
  - Haemorrhage [Unknown]
